FAERS Safety Report 9056875 (Version 1)
Quarter: 2013Q1

REPORT INFORMATION
  Report Type: Report from Study
  Country: JP (occurrence: JP)
  Receive Date: 20130201
  Receipt Date: 20130201
  Transmission Date: 20140127
  Serious: Yes (Other)
  Sender: FDA-Public Use
  Company Number: JP-GLAXOSMITHKLINE-B0860842A

PATIENT
  Age: 53 None
  Sex: Female
  Weight: 43 kg

DRUGS (20)
  1. TYKERB [Suspect]
     Indication: BREAST CANCER
     Route: 048
     Dates: start: 20100823, end: 20100929
  2. XELODA [Suspect]
     Route: 048
     Dates: start: 20100823, end: 20100823
  3. LAXOBERON [Suspect]
     Indication: CONSTIPATION
     Route: 048
     Dates: start: 20100825
  4. MORPHINE [Suspect]
     Indication: CANCER PAIN
     Route: 048
  5. OXYCONTIN [Suspect]
     Indication: CANCER PAIN
     Route: 048
     Dates: start: 20100823, end: 20100825
  6. MORPHINE [Suspect]
     Indication: CANCER PAIN
     Route: 048
     Dates: start: 20100823, end: 20100827
  7. OXINORM [Suspect]
     Indication: CANCER PAIN
     Route: 048
     Dates: start: 20100825
  8. LENDORMIN [Concomitant]
     Indication: INSOMNIA
     Route: 048
     Dates: end: 20100828
  9. DEPAS [Concomitant]
     Indication: INSOMNIA
     Route: 048
     Dates: end: 20100826
  10. AMOBAN [Concomitant]
     Indication: INSOMNIA
     Route: 048
     Dates: start: 20100826
  11. SOLANAX [Concomitant]
     Indication: INSOMNIA
     Route: 048
     Dates: start: 20100827, end: 20100904
  12. SEROQUEL [Concomitant]
     Indication: INSOMNIA
     Route: 048
     Dates: start: 20100909
  13. MAGMITT [Concomitant]
     Indication: CONSTIPATION
     Route: 048
  14. PURSENNID [Concomitant]
     Indication: CONSTIPATION
     Route: 048
     Dates: end: 20100824
  15. BISACODYL [Concomitant]
     Indication: CONSTIPATION
     Route: 054
     Dates: start: 20100825
  16. TRYPTANOL [Concomitant]
     Indication: HYPOAESTHESIA
     Route: 048
     Dates: start: 20100826, end: 20100901
  17. LOXOPROFEN [Concomitant]
     Indication: TUMOUR ASSOCIATED FEVER
     Route: 048
  18. CALONAL [Concomitant]
     Indication: TUMOUR ASSOCIATED FEVER
     Route: 048
  19. GASTER [Concomitant]
     Indication: GASTRITIS PROPHYLAXIS
     Route: 048
  20. DUROTEP [Concomitant]
     Indication: CANCER PAIN
     Route: 062
     Dates: start: 20100825

REACTIONS (5)
  - Delirium [Recovering/Resolving]
  - Diarrhoea [Recovered/Resolved]
  - Malaise [Recovering/Resolving]
  - Vomiting [Recovered/Resolved]
  - Paronychia [Not Recovered/Not Resolved]
